FAERS Safety Report 9571920 (Version 1)
Quarter: 2013Q3

REPORT INFORMATION
  Report Type: Spontaneous
  Country: US (occurrence: None)
  Receive Date: 20130930
  Receipt Date: 20130930
  Transmission Date: 20140515
  Serious: Yes (Hospitalization)
  Sender: FDA-Public Use
  Company Number: None

PATIENT
  Age: 78 Year
  Sex: Female
  Weight: 64.86 kg

DRUGS (3)
  1. GEMCITABINE [Suspect]
     Indication: BLADDER CANCER
     Dosage: ONCE
     Dates: start: 20130918
  2. NEULASTA [Suspect]
     Indication: NEOPLASM MALIGNANT
     Dosage: ONCE
     Dates: start: 20130919
  3. CISPLATIN [Suspect]
     Indication: BLADDER CANCER
     Route: 042

REACTIONS (5)
  - Fatigue [None]
  - Abdominal pain [None]
  - Asthenia [None]
  - Vomiting [None]
  - Nausea [None]
